FAERS Safety Report 24185918 (Version 2)
Quarter: 2024Q4

REPORT INFORMATION
  Report Type: Spontaneous
  Country: US (occurrence: US)
  Receive Date: 20240807
  Receipt Date: 20241011
  Transmission Date: 20250115
  Serious: No
  Sender: BLUEPRINT MEDICINES
  Company Number: US-Blueprint Medicines Corporation-4394

PATIENT
  Age: 35 Year
  Sex: Female

DRUGS (1)
  1. AYVAKIT [Suspect]
     Active Substance: AVAPRITINIB
     Indication: Systemic mastocytosis
     Route: 048
     Dates: start: 20240627

REACTIONS (4)
  - Fatigue [Unknown]
  - Drug ineffective [Unknown]
  - Illness [Unknown]
  - Rash [Unknown]

NARRATIVE: CASE EVENT DATE: 20240701
